FAERS Safety Report 11400890 (Version 1)
Quarter: 2015Q3

REPORT INFORMATION
  Report Type: Spontaneous
  Country: US (occurrence: US)
  Receive Date: 20150820
  Receipt Date: 20150820
  Transmission Date: 20151125
  Serious: Yes (Other)
  Sender: FDA-Public Use
  Company Number: US-ASTRAZENECA-2015SE78607

PATIENT
  Age: 947 Month
  Sex: Female
  Weight: 65.8 kg

DRUGS (3)
  1. OMEPRAZOLE. [Suspect]
     Active Substance: OMEPRAZOLE
     Indication: GASTROOESOPHAGEAL REFLUX DISEASE
     Route: 048
  2. VITAMIN D3 WITH CALCIUM [Concomitant]
     Indication: BONE DISORDER
     Route: 048
  3. ANASTROZOLE. [Suspect]
     Active Substance: ANASTROZOLE
     Indication: BREAST CANCER
     Route: 048

REACTIONS (8)
  - Drug ineffective [Unknown]
  - Back pain [Unknown]
  - Memory impairment [Unknown]
  - Abdominal pain upper [Unknown]
  - Sleep disorder due to general medical condition, insomnia type [Unknown]
  - Breast cancer [Recovering/Resolving]
  - Gastrooesophageal reflux disease [Unknown]
  - Night sweats [Unknown]

NARRATIVE: CASE EVENT DATE: 201409
